FAERS Safety Report 26019357 (Version 1)
Quarter: 2025Q4

REPORT INFORMATION
  Report Type: Spontaneous
  Country: US (occurrence: US)
  Receive Date: 20251110
  Receipt Date: 20251110
  Transmission Date: 20260117
  Serious: No
  Sender: Kenvue
  Company Number: US-KENVUE-20251013851

PATIENT
  Sex: Female

DRUGS (1)
  1. WOMENS ROGAINE UNSCENTED [Suspect]
     Active Substance: MINOXIDIL
     Indication: Alopecia
     Dosage: HALF A CAP FULL, ONCE A DAY
     Route: 065
     Dates: start: 20250501, end: 202507

REACTIONS (1)
  - Hair growth abnormal [Recovering/Resolving]

NARRATIVE: CASE EVENT DATE: 20250701
